FAERS Safety Report 9175132 (Version 1)
Quarter: 2013Q1

REPORT INFORMATION
  Report Type: Spontaneous
  Country: GB (occurrence: None)
  Receive Date: 20130315
  Receipt Date: 20130315
  Transmission Date: 20140127
  Serious: Yes (Other)
  Sender: FDA-Public Use
  Company Number: 2013-04243

PATIENT
  Age: 77 Year
  Sex: Male
  Weight: 85 kg

DRUGS (4)
  1. DOXAZOSIN MESYLATE (UNKNOWN) (DOXAZOSIN MESYLATE) [Suspect]
     Indication: HYPERTENSION
     Dates: start: 20130131, end: 20130208
  2. RAMIPRIL (RAMIPRIL) [Concomitant]
  3. ATENOLOL (ATENOLOL) [Concomitant]
  4. OMEPRAZOLE (OMEPRAZOLE) [Concomitant]

REACTIONS (5)
  - Abdominal pain [None]
  - Headache [None]
  - Hypotension [None]
  - Lethargy [None]
  - Sleep disorder [None]
